FAERS Safety Report 25983414 (Version 2)
Quarter: 2025Q4

REPORT INFORMATION
  Report Type: Spontaneous
  Country: GB (occurrence: None)
  Receive Date: 20251031
  Receipt Date: 20251110
  Transmission Date: 20260118
  Serious: Yes (Other)
  Sender: ORGANON
  Company Number: GB-ORGANON-O2510GBR001867

PATIENT
  Age: 40 Year
  Sex: Female

DRUGS (1)
  1. NEXPLANON [Suspect]
     Active Substance: ETONOGESTREL
     Dosage: 1 IMPLANT (LEFT UPPER ARM)

REACTIONS (4)
  - Pregnancy with implant contraceptive [Recovered/Resolved]
  - Unintended pregnancy [Recovered/Resolved]
  - Complication associated with device [Not Recovered/Not Resolved]
  - Device dislocation [Recovering/Resolving]

NARRATIVE: CASE EVENT DATE: 20241101
